FAERS Safety Report 10022090 (Version 2)
Quarter: 2014Q1

REPORT INFORMATION
  Report Type: Spontaneous
  Country: US (occurrence: US)
  Receive Date: 20140319
  Receipt Date: 20140319
  Transmission Date: 20141002
  Serious: No
  Sender: FDA-Public Use
  Company Number: US-009507513-1401USA011438

PATIENT
  Sex: Female

DRUGS (1)
  1. MIRALAX [Suspect]
     Indication: IRRITABLE BOWEL SYNDROME
     Dosage: 17 G, BID
     Route: 048

REACTIONS (3)
  - Overdose [Unknown]
  - Incorrect drug administration duration [Unknown]
  - Off label use [Unknown]
